FAERS Safety Report 5532506-6 (Version None)
Quarter: 2007Q4

REPORT INFORMATION
  Report Type: 
  Country: None (occurrence: None)
  Receive Date: 20071203
  Receipt Date: 20071121
  Transmission Date: 20080405
  Serious: Yes (Other)
  Sender: FDA-Public Use
  Company Number: US-PFIZER INC-2007098892

PATIENT
  Age: 56 Year
  Sex: Female
  Weight: 62.1 kg

DRUGS (11)
  1. LYRICA [Suspect]
     Indication: NEUROPATHY
     Route: 048
  2. ALL OTHER THERAPEUTIC PRODUCTS [Interacting]
  3. LEXAPRO [Concomitant]
  4. LIPITOR [Concomitant]
  5. FUROSEMIDE [Concomitant]
  6. COREG [Concomitant]
  7. SPIRONOLACTONE [Concomitant]
  8. ISOSORBIDE DINITRATE [Concomitant]
  9. ENALAPRIL [Concomitant]
  10. POTASSIUM CHLORIDE [Concomitant]
  11. ACETYLSALICYLIC ACID SRT [Concomitant]

REACTIONS (5)
  - AMNESIA [None]
  - DEMENTIA ALZHEIMER'S TYPE [None]
  - DRUG DOSE OMISSION [None]
  - DRUG INTERACTION [None]
  - PAIN [None]
